FAERS Safety Report 5371789-2 (Version None)
Quarter: 2007Q2

REPORT INFORMATION
  Report Type: 
  Country: None (occurrence: None)
  Receive Date: 20070627
  Receipt Date: 20070621
  Transmission Date: 20071010
  Serious: Yes (Death, Hospitalization)
  Sender: FDA-Public Use
  Company Number: DE-BAYER-200710675BVD

PATIENT
  Age: 85 Year
  Sex: Female

DRUGS (9)
  1. AVELOX [Suspect]
     Indication: URINARY TRACT INFECTION
     Route: 048
     Dates: start: 20070522, end: 20070531
  2. SPIRIVA [Concomitant]
  3. SYMBICORT [Concomitant]
  4. ARLEVERT [Concomitant]
  5. OMEPRAZOLE [Concomitant]
  6. TRAMADOL HCL [Concomitant]
  7. IBUPROFEN [Concomitant]
  8. NOVALGIN [Concomitant]
  9. AMITRIPTYLINE HCL [Concomitant]

REACTIONS (5)
  - ABDOMINAL PAIN [None]
  - ILEUS [None]
  - OSTEOLYSIS [None]
  - PSEUDOMEMBRANOUS COLITIS [None]
  - SEPSIS [None]
